FAERS Safety Report 5860272-3 (Version None)
Quarter: 2008Q3

REPORT INFORMATION
  Report Type: 
  Country: None (occurrence: None)
  Receive Date: 20080827
  Receipt Date: 20070816
  Transmission Date: 20090109
  Serious: No
  Sender: FDA-Public Use
  Company Number: US-ABBOTT-07P-163-0377865-00

PATIENT
  Sex: Male
  Weight: 115.9 kg

DRUGS (3)
  1. COATED PDS [Suspect]
     Indication: HIGH DENSITY LIPOPROTEIN DECREASED
     Dosage: 500MG, 2 TABLETS AT NIGHT (ORANGE)
     Route: 048
     Dates: start: 20070810
  2. COATED PDS [Suspect]
     Dosage: 500MG, 2 TABLETS IN THE MORNING (WHITE)
     Route: 048
     Dates: start: 19990101
  3. METFORMIN HCL [Concomitant]
     Indication: DIABETES MELLITUS

REACTIONS (3)
  - FLUSHING [None]
  - FORMICATION [None]
  - PRURITUS GENERALISED [None]
